FAERS Safety Report 5976184-0 (Version None)
Quarter: 2008Q4

REPORT INFORMATION
  Report Type: 
  Country: None (occurrence: None)
  Receive Date: 20081202
  Receipt Date: 20081127
  Transmission Date: 20090506
  Serious: Yes (Other)
  Sender: FDA-Public Use
  Company Number: PHHO2008DE14170

PATIENT
  Sex: Male
  Weight: 75 kg

DRUGS (3)
  1. ZOLEDRONATE T29581+SOLINJ+BM [Suspect]
     Indication: METASTASES TO BONE
     Dosage: 4 MG, EVERY 4 WEEKS
     Route: 042
  2. CALCIUM [Concomitant]
     Indication: METASTASES TO BONE
  3. VITAMIN D [Concomitant]
     Indication: METASTASES TO BONE

REACTIONS (2)
  - OSTEONECROSIS [None]
  - TOOTH INFECTION [None]
